FAERS Safety Report 8928655 (Version 1)
Quarter: 2012Q4

REPORT INFORMATION
  Report Type: Spontaneous
  Country: US (occurrence: None)
  Receive Date: 20121126
  Receipt Date: 20121126
  Transmission Date: 20130627
  Serious: Yes (Disabling)
  Sender: FDA-Public Use
  Company Number: None

PATIENT
  Age: 42 Year
  Sex: Male
  Weight: 78.02 kg

DRUGS (1)
  1. ANDROGEL 1.62% [Suspect]
     Dosage: 2 pumps once daily Transdermal
     Route: 062
     Dates: start: 20120701, end: 20121118

REACTIONS (2)
  - Testicular atrophy [None]
  - Testicular pain [None]
